FAERS Safety Report 25951389 (Version 2)
Quarter: 2025Q4

REPORT INFORMATION
  Report Type: Report from Study
  Country: US (occurrence: US)
  Receive Date: 20251023
  Receipt Date: 20251210
  Transmission Date: 20260117
  Serious: Yes (Other)
  Sender: ALEXION PHARMACEUTICALS
  Company Number: US-AstraZeneca-CH-00975782A

PATIENT
  Age: 69 Year
  Sex: Female

DRUGS (3)
  1. DAPAGLIFLOZIN [Suspect]
     Active Substance: DAPAGLIFLOZIN
     Dosage: UNK
     Route: 065
  2. ACALABRUTINIB [Suspect]
     Active Substance: ACALABRUTINIB
     Dosage: UNK
     Route: 065
  3. VOLRUSTOMIG [Suspect]
     Active Substance: VOLRUSTOMIG
     Dosage: UNK
     Route: 065

REACTIONS (2)
  - Blindness [Unknown]
  - Sleep apnoea syndrome [Unknown]
